FAERS Safety Report 25382051 (Version 1)
Quarter: 2025Q2

REPORT INFORMATION
  Report Type: Spontaneous
  Country: FR (occurrence: FR)
  Receive Date: 20250531
  Receipt Date: 20250531
  Transmission Date: 20250717
  Serious: Yes (Other)
  Sender: MSN LABORATORIES PRIVATE LIMITED
  Company Number: FR-MSNLABS-2025MSNLIT01364

PATIENT

DRUGS (4)
  1. PREGABALIN [Suspect]
     Active Substance: PREGABALIN
     Indication: Product used for unknown indication
     Dosage: 1200 MG PER DAY
     Route: 065
  2. PREGABALIN [Suspect]
     Active Substance: PREGABALIN
     Dosage: INITIAL DOSE OF 600 MG PER DAY.
     Route: 065
  3. PREGABALIN [Suspect]
     Active Substance: PREGABALIN
     Dosage: INCREASED AT 900 MG PER DAY
     Route: 065
  4. PALIPERIDONE [Concomitant]
     Active Substance: PALIPERIDONE
     Indication: Schizophrenia
     Route: 065

REACTIONS (6)
  - Hallucination [Unknown]
  - Drug use disorder [Unknown]
  - Intentional product misuse [Unknown]
  - Drug dependence [Unknown]
  - Confusional state [Unknown]
  - Withdrawal syndrome [Unknown]
